FAERS Safety Report 13111084 (Version 5)
Quarter: 2019Q1

REPORT INFORMATION
  Report Type: Spontaneous
  Country: US (occurrence: US)
  Receive Date: 20170112
  Receipt Date: 20190201
  Transmission Date: 20190417
  Serious: Yes (Other)
  Sender: FDA-Public Use
  Company Number: US-ELI_LILLY_AND_COMPANY-US201701003430

PATIENT
  Age: 69 Year
  Sex: Female

DRUGS (7)
  1. HUMULIN R [Suspect]
     Active Substance: INSULIN HUMAN
     Dosage: 37 U, EACH EVENING
     Route: 058
     Dates: start: 2008
  2. HUMULIN R [Suspect]
     Active Substance: INSULIN HUMAN
     Dosage: 400 U, DAILY
     Route: 058
  3. HUMULIN R [Suspect]
     Active Substance: INSULIN HUMAN
     Dosage: 200 U, BID
     Route: 065
  4. HUMULIN R [Suspect]
     Active Substance: INSULIN HUMAN
     Indication: TYPE 2 DIABETES MELLITUS
     Dosage: 42 U, EACH MORNING
     Route: 058
     Dates: start: 2008
  5. HUMULIN R [Suspect]
     Active Substance: INSULIN HUMAN
     Dosage: 165 U, EACH EVENING
     Route: 058
  6. HUMULIN R [Suspect]
     Active Substance: INSULIN HUMAN
     Dosage: 200 U, EACH MORNING
     Route: 058
  7. GLIMEPIRIDE. [Concomitant]
     Active Substance: GLIMEPIRIDE
     Indication: PRODUCT USED FOR UNKNOWN INDICATION
     Dosage: UNK

REACTIONS (8)
  - Neuropathy peripheral [Not Recovered/Not Resolved]
  - Macular oedema [Unknown]
  - Cataract [Recovering/Resolving]
  - Blindness [Unknown]
  - Metastases to ovary [Unknown]
  - Appendix cancer [Recovering/Resolving]
  - Colon cancer stage IV [Unknown]
  - Back pain [Unknown]

NARRATIVE: CASE EVENT DATE: 201605
